FAERS Safety Report 7400752-2 (Version None)
Quarter: 2011Q2

REPORT INFORMATION
  Report Type: 
  Country: None (occurrence: None)
  Receive Date: 20110407
  Receipt Date: 20110331
  Transmission Date: 20111010
  Serious: Yes (Other)
  Sender: FDA-Public Use
  Company Number: A0920889A

PATIENT
  Age: 55 Year
  Sex: Female

DRUGS (2)
  1. NO CONCURRENT MEDICATION [Concomitant]
  2. AVODART [Suspect]
     Indication: ILL-DEFINED DISORDER
     Dosage: 1CAP SINGLE DOSE
     Route: 067
     Dates: start: 20110329

REACTIONS (5)
  - ACCIDENTAL EXPOSURE [None]
  - ABDOMINAL PAIN UPPER [None]
  - MYOCARDIAL INFARCTION [None]
  - ABDOMINAL DISCOMFORT [None]
  - MUSCLE TIGHTNESS [None]
